FAERS Safety Report 5809150-6 (Version None)
Quarter: 2008Q3

REPORT INFORMATION
  Report Type: 
  Country: None (occurrence: None)
  Receive Date: 20080714
  Receipt Date: 20080708
  Transmission Date: 20090109
  Serious: Yes (Other)
  Sender: FDA-Public Use
  Company Number: US-GILEAD-2008-0016450

PATIENT
  Age: 88 Year
  Sex: Male

DRUGS (3)
  1. LETAIRIS [Suspect]
  2. BUMEX [Concomitant]
  3. LASIX [Concomitant]

REACTIONS (3)
  - DYSPNOEA [None]
  - GENERALISED OEDEMA [None]
  - WEIGHT INCREASED [None]
